FAERS Safety Report 9984247 (Version 1)
Quarter: 2014Q1

REPORT INFORMATION
  Report Type: Report from Study
  Country: US (occurrence: US)
  Receive Date: 20140307
  Receipt Date: 20140307
  Transmission Date: 20141002
  Serious: No
  Sender: FDA-Public Use
  Company Number: US-ALEXION-A201002053

PATIENT
  Sex: 0

DRUGS (1)
  1. SOLIRIS [Suspect]
     Indication: PAROXYSMAL NOCTURNAL HAEMOGLOBINURIA
     Dosage: UNK
     Route: 042

REACTIONS (6)
  - Dyspnoea [Unknown]
  - Haemoglobinuria [Unknown]
  - Jaundice [Unknown]
  - Fatigue [Unknown]
  - Abdominal pain [Unknown]
  - Quality of life decreased [Unknown]
